FAERS Safety Report 17208956 (Version 1)
Quarter: 2019Q4

REPORT INFORMATION
  Report Type: Spontaneous
  Country: JP (occurrence: JP)
  Receive Date: 20191227
  Receipt Date: 20191227
  Transmission Date: 20200122
  Serious: Yes (Other)
  Sender: FDA-Public Use
  Company Number: JP-MYLANLABS-2019M1130879

PATIENT
  Sex: Female

DRUGS (2)
  1. PREDNISOLONE. [Suspect]
     Active Substance: PREDNISOLONE
     Indication: MALNUTRITION-INFLAMMATION-ATHEROSCLEROSIS SYNDROME
     Dosage: 3 MILLIGRAM
     Route: 065
  2. PREDNISOLONE. [Suspect]
     Active Substance: PREDNISOLONE
     Indication: MICROSCOPIC POLYANGIITIS
     Dosage: INITIAL DOSAGE NOT STATED
     Route: 065

REACTIONS (2)
  - White blood cell count increased [Unknown]
  - C-reactive protein increased [Recovering/Resolving]
